FAERS Safety Report 18666163 (Version 1)
Quarter: 2020Q4

REPORT INFORMATION
  Report Type: Report from Study
  Country: US (occurrence: US)
  Receive Date: 20201226
  Receipt Date: 20201226
  Transmission Date: 20210114
  Serious: No
  Sender: FDA-Public Use
  Company Number: NVSC2020US339678

PATIENT
  Sex: Male

DRUGS (2)
  1. MEXILETINE [Concomitant]
     Active Substance: MEXILETINE
     Indication: PRODUCT USED FOR UNKNOWN INDICATION
     Route: 065
  2. ENTRESTO [Suspect]
     Active Substance: SACUBITRIL\VALSARTAN
     Indication: CARDIAC FAILURE
     Dosage: 4951 MG, BID
     Route: 048
     Dates: start: 2019

REACTIONS (2)
  - Weight decreased [Unknown]
  - Gastrooesophageal reflux disease [Unknown]
